FAERS Safety Report 18776643 (Version 2)
Quarter: 2021Q1

REPORT INFORMATION
  Report Type: Report from Study
  Country: CO (occurrence: CO)
  Receive Date: 20210122
  Receipt Date: 20210208
  Transmission Date: 20210419
  Serious: Yes (Hospitalization, Other)
  Sender: FDA-Public Use
  Company Number: NVSC2020CO335745

PATIENT
  Age: 71 Year
  Sex: Female
  Weight: 60 kg

DRUGS (4)
  1. LEVOTHYROXINE. [Concomitant]
     Active Substance: LEVOTHYROXINE
     Indication: HYPERTHYROIDISM
     Dosage: 100 MG, QD (20 YEARS AGO)
     Route: 048
  2. KISQALI [Suspect]
     Active Substance: RIBOCICLIB
     Indication: BREAST CANCER METASTATIC
     Dosage: 600 MG, QD
     Route: 048
     Dates: start: 202011
  3. PERTUZUMAB. [Concomitant]
     Active Substance: PERTUZUMAB
     Indication: PRODUCT USED FOR UNKNOWN INDICATION
     Dosage: UNK
     Route: 065
     Dates: start: 20210111, end: 20210111
  4. FEMARA [Suspect]
     Active Substance: LETROZOLE
     Indication: BREAST CANCER
     Dosage: 2.5 MG, QD
     Route: 048
     Dates: start: 202011

REACTIONS (13)
  - Neoplasm [Unknown]
  - Metastasis [Unknown]
  - Hip fracture [Unknown]
  - Metastases to kidney [Unknown]
  - Malaise [Unknown]
  - Back pain [Unknown]
  - Blood pressure increased [Unknown]
  - Dyspnoea [Unknown]
  - Asthenia [Unknown]
  - Lung disorder [Unknown]
  - Inflammation [Unknown]
  - Fluid retention [Unknown]
  - Arthralgia [Unknown]

NARRATIVE: CASE EVENT DATE: 202011
